FAERS Safety Report 7632446-2 (Version None)
Quarter: 2011Q3

REPORT INFORMATION
  Report Type: 
  Country: None (occurrence: None)
  Receive Date: 20110725
  Receipt Date: 20100909
  Transmission Date: 20111222
  Serious: No
  Sender: FDA-Public Use
  Company Number: US-BRISTOL-MYERS SQUIBB COMPANY-15279466

PATIENT
  Age: 53 Year
  Sex: Female
  Weight: 191 kg

DRUGS (12)
  1. AVAPRO [Concomitant]
  2. EFFEXOR [Concomitant]
  3. ZYRTEC [Concomitant]
  4. FOLIC ACID [Concomitant]
  5. TEGRETOL [Concomitant]
  6. COUMADIN [Suspect]
     Indication: THROMBOSIS
     Dosage: AND ALSO 15MG 4 TIMES WEEKLY
     Dates: start: 20100607
  7. SPIRONOLACTONE [Concomitant]
  8. FAMOTIDINE [Concomitant]
  9. VITAMIN D [Concomitant]
  10. PERCOCET [Concomitant]
  11. METHOTREXATE [Concomitant]
  12. METOPROLOL TARTRATE [Concomitant]

REACTIONS (1)
  - INTERNATIONAL NORMALISED RATIO FLUCTUATION [None]
